FAERS Safety Report 23861303 (Version 6)
Quarter: 2025Q1

REPORT INFORMATION
  Report Type: Spontaneous
  Country: IT (occurrence: IT)
  Receive Date: 20240516
  Receipt Date: 20250224
  Transmission Date: 20250409
  Serious: Yes (Congenital Anomaly)
  Sender: ROCHE
  Company Number: IT-ROCHE-3558843

PATIENT
  Age: 6 Month
  Sex: Female
  Weight: 3.28 kg

DRUGS (1)
  1. OCREVUS [Suspect]
     Active Substance: OCRELIZUMAB
     Indication: Product used for unknown indication
     Route: 064
     Dates: start: 20220307, end: 20230322

REACTIONS (4)
  - Right aortic arch [Unknown]
  - Foetal exposure during pregnancy [Unknown]
  - Atrial septal defect [Unknown]
  - Gastrointestinal infection [Recovered/Resolved]

NARRATIVE: CASE EVENT DATE: 20241101
